FAERS Safety Report 18589176 (Version 2)
Quarter: 2020Q4

REPORT INFORMATION
  Report Type: Spontaneous
  Country: IT (occurrence: IT)
  Receive Date: 20201208
  Receipt Date: 20201208
  Transmission Date: 20210114
  Serious: Yes (Other)
  Sender: FDA-Public Use
  Company Number: IT-TEVA-2020-IT-1854734

PATIENT
  Age: 3 Year
  Sex: Female
  Weight: 14 kg

DRUGS (10)
  1. UROMITEXAN [Concomitant]
     Active Substance: MESNA
     Dosage: 2000MILLIGRAM
     Route: 042
     Dates: start: 20201112, end: 20201114
  2. LASIX [Concomitant]
     Active Substance: FUROSEMIDE
     Dosage: VIALS:5MILLIGRAM
     Route: 042
     Dates: start: 20201112, end: 20201114
  3. ANTRA [Concomitant]
     Active Substance: OMEPRAZOLE
     Dosage: 20MILLIGRAM
     Route: 042
     Dates: start: 20201112, end: 20201114
  4. HOLOXAN [Suspect]
     Active Substance: IFOSFAMIDE
     Indication: PLEUROPULMONARY BLASTOMA
     Dosage: 1980MILLIGRAM
     Route: 042
     Dates: start: 20201112, end: 20201114
  5. DECADRON [Concomitant]
     Active Substance: DEXAMETHASONE
     Dosage: 3MILLIGRAM
     Route: 042
     Dates: start: 20201112, end: 20201114
  6. COSMEGEN [Concomitant]
     Active Substance: DACTINOMYCIN
     Dosage: 1MILLIGRAM
     Route: 042
     Dates: start: 20201112, end: 20201114
  7. ENDOXAN BAXTER [Concomitant]
     Active Substance: CYCLOPHOSPHAMIDE
     Dosage: 408MILLIGRAM
     Route: 042
     Dates: start: 20201112, end: 20201114
  8. VINCRISTINE [Suspect]
     Active Substance: VINCRISTINE
     Indication: PLEUROPULMONARY BLASTOMA
     Dosage: 1MILLIGRAM
     Route: 042
     Dates: start: 20201112, end: 20201114
  9. BACTRIM [Concomitant]
     Active Substance: SULFAMETHOXAZOLE\TRIMETHOPRIM
     Dosage: 10ML
     Route: 048
     Dates: start: 20201112, end: 20201114
  10. ZOFRAN [Concomitant]
     Active Substance: ONDANSETRON HYDROCHLORIDE
     Dosage: 15MILLIGRAM
     Route: 042
     Dates: start: 20201112, end: 20201114

REACTIONS (1)
  - Pain [Recovering/Resolving]

NARRATIVE: CASE EVENT DATE: 20201112
